FAERS Safety Report 8817664 (Version 1)
Quarter: 2012Q4

REPORT INFORMATION
  Report Type: 
  Country: AR (occurrence: AR)
  Receive Date: 20121001
  Receipt Date: 20121001
  Transmission Date: 20130627
  Serious: Yes (Death, Hospitalization)
  Sender: FDA-Public Use
  Company Number: PHHY2012AR084939

PATIENT

DRUGS (1)
  1. EXFORGE [Suspect]
     Indication: FATIGUE
     Dosage: 1 DF (160 mg vals and 5 mg amlo), daily

REACTIONS (2)
  - Gastric haemorrhage [Fatal]
  - Varices oesophageal [Fatal]
